FAERS Safety Report 6221622-1 (Version None)
Quarter: 2009Q2

REPORT INFORMATION
  Report Type: 
  Country: None (occurrence: None)
  Receive Date: 20090610
  Receipt Date: 20090603
  Transmission Date: 20091009
  Serious: Yes (Life-Threatening, Hospitalization)
  Sender: FDA-Public Use
  Company Number: US-BAYER-200922667NA

PATIENT
  Age: 67 Year
  Sex: Male
  Weight: 58 kg

DRUGS (15)
  1. ULTRAVIST 370 [Suspect]
     Indication: ANGIOGRAM PULMONARY
     Dosage: TOTAL DAILY DOSE: 100 ML  UNIT DOSE: 150 ML
     Route: 042
     Dates: start: 20090520, end: 20090520
  2. BACTRIM [Concomitant]
     Dates: start: 20090529
  3. PLAVIX [Concomitant]
     Dates: start: 20090506
  4. ASPIRIN [Concomitant]
     Dates: start: 20090506
  5. GUIAFEN-PSE [Concomitant]
     Dates: start: 20090506
  6. BENICA [Concomitant]
     Dates: start: 20090224
  7. NITROSTAT [Concomitant]
     Dates: start: 20090224
  8. LIDEX [Concomitant]
     Dates: start: 20081007
  9. PROAIR HFA [Concomitant]
     Dates: start: 20081007
  10. KENALOG [Concomitant]
     Dates: start: 20080804
  11. XOPENEX [Concomitant]
     Dates: start: 20080604
  12. PLUMICORT FLEXHALER [Concomitant]
     Dates: start: 20080604
  13. SPIRIVA [Concomitant]
     Dates: start: 20080604
  14. UNIPHYL [Concomitant]
     Dates: start: 20080604
  15. BROVANA [Concomitant]

REACTIONS (2)
  - FEELING HOT [None]
  - RESPIRATORY DISTRESS [None]
